FAERS Safety Report 21129132 (Version 2)
Quarter: 2022Q4

REPORT INFORMATION
  Report Type: Spontaneous
  Country: PL (occurrence: None)
  Receive Date: 20220725
  Receipt Date: 20221013
  Transmission Date: 20230112
  Serious: Yes (Other)
  Sender: FDA-Public Use
  Company Number: PL-ROCHE-3143871

PATIENT
  Age: 65 Year
  Sex: Female

DRUGS (1)
  1. ALECENSA [Suspect]
     Active Substance: ALECTINIB HYDROCHLORIDE
     Indication: Lung adenocarcinoma
     Route: 065

REACTIONS (3)
  - Blood creatine phosphokinase increased [Unknown]
  - Bradycardia [Unknown]
  - Adrenalectomy [Unknown]

NARRATIVE: CASE EVENT DATE: 20191122
